FAERS Safety Report 7533295-6 (Version None)
Quarter: 2011Q2

REPORT INFORMATION
  Report Type: 
  Country: None (occurrence: None)
  Receive Date: 20110608
  Receipt Date: 20050104
  Transmission Date: 20111010
  Serious: Yes (Other)
  Sender: FDA-Public Use
  Company Number: PHNR2004AU00979

PATIENT
  Sex: Female

DRUGS (3)
  1. CLOZAPINE [Suspect]
     Dosage: 25-200MG, QD
     Route: 048
     Dates: start: 19990506, end: 20041206
  2. CLOZAPINE [Suspect]
     Dosage: 100 MG, QD
     Route: 048
     Dates: start: 20041206
  3. VALPROATE SODIUM [Concomitant]

REACTIONS (3)
  - GINGIVAL ATROPHY [None]
  - TEETH BRITTLE [None]
  - DENTAL CARIES [None]
